FAERS Safety Report 4308167-0 (Version None)
Quarter: 2004Q1

REPORT INFORMATION
  Report Type: 
  Country: None (occurrence: None)
  Receive Date: 20040301
  Receipt Date: 20030717
  Transmission Date: 20041129
  Serious: No
  Sender: FDA-Public Use
  Company Number: US-BRISTOL-MYERS SQUIBB COMPANY-12329405

PATIENT
  Age: 61 Year
  Sex: Female
  Weight: 132 kg

DRUGS (3)
  1. GLUCOPHAGE [Suspect]
     Indication: BLOOD GLUCOSE INCREASED
  2. INSULIN [Concomitant]
  3. DIABETA [Concomitant]

REACTIONS (1)
  - DIARRHOEA [None]
